FAERS Safety Report 9508546 (Version 1)
Quarter: 2013Q1

REPORT INFORMATION
  Report Type: Spontaneous
  Country: US (occurrence: None)
  Receive Date: 20130305
  Receipt Date: 20130305
  Transmission Date: 20140127
  Serious: Yes (Other)
  Sender: FDA-Public Use
  Company Number: 163-21880-1208125

PATIENT
  Age: 67 Year
  Sex: Male
  Weight: 109.3 kg

DRUGS (12)
  1. REVLIMID [Suspect]
     Indication: PLASMA CELL MYELOMA
     Dosage: 1 IN 1 D
     Route: 048
     Dates: start: 20100226
  2. ASPIRIN (ACETYLSALICYLIC ACID) (UNKNOWN) (ACETYLSALICYLIC ACID) [Concomitant]
  3. LIPITOR (ATORVASTATIN) (UNKNOWN) [Concomitant]
  4. AZITHROMYCIN (AZITHROMYCIN) (UNKNOWN) [Concomitant]
  5. SUDAFED (PSEUDOEPHEDRINE HYDROCHLORIDE) (UNKNOWN) [Concomitant]
  6. Q-TUSSIN (GUAIFENESIN) (UNKNOWN) [Concomitant]
  7. VITAMIN B COMPLEX (B-KOMPLEX ^LECIVA^) (UNKNOWN) [Concomitant]
  8. METAMUCIL (METAMUCIL ^PROCTOR + GAMBLE^) (UNKNOWN) [Concomitant]
  9. METFORMIN (METFORMIN) (UNKNOWN) [Concomitant]
  10. GLIPIZIDE (GLIPIZIDE) (UNKNOWN) [Concomitant]
  11. PLAVIX (CLOPIDOGREL SULFATE) (UNKNOWN) [Concomitant]
  12. MULTIVITAMIN (MULTIVITAMINS) (UNKNOWN) [Concomitant]

REACTIONS (5)
  - Urine flow decreased [None]
  - Pleural effusion [None]
  - Bronchitis [None]
  - Increased upper airway secretion [None]
  - Neuropathy peripheral [None]
